FAERS Safety Report 4705450-1 (Version None)
Quarter: 2005Q3

REPORT INFORMATION
  Report Type: 
  Country: None (occurrence: None)
  Receive Date: 20050701
  Receipt Date: 20050624
  Transmission Date: 20060218
  Serious: Yes (Other)
  Sender: FDA-Public Use
  Company Number: PHBS2005JP09107

PATIENT
  Age: 44 Year
  Sex: Male
  Weight: 55 kg

DRUGS (10)
  1. TEGRETOL [Suspect]
     Indication: SCHIZOPHRENIA
     Dosage: 100 MG, BID
     Route: 048
     Dates: start: 20050106
  2. CONTOMIN [Concomitant]
     Route: 048
  3. TASMOLIN [Concomitant]
     Route: 048
  4. SENIRAN [Concomitant]
     Route: 048
  5. NITRAZEPAM [Concomitant]
     Route: 048
  6. LANDSEN [Concomitant]
     Route: 048
  7. LEVOTOMIN [Concomitant]
     Route: 048
  8. HIBERNA [Concomitant]
     Route: 048
  9. PENCLUSIN [Concomitant]
     Route: 048
  10. CHLORPHENIRAMINE MALEATE [Concomitant]
     Route: 048

REACTIONS (11)
  - ALANINE AMINOTRANSFERASE INCREASED [None]
  - ASPARTATE AMINOTRANSFERASE INCREASED [None]
  - C-REACTIVE PROTEIN INCREASED [None]
  - CONVULSION [None]
  - GAMMA-GLUTAMYLTRANSFERASE INCREASED [None]
  - PYREXIA [None]
  - RASH GENERALISED [None]
  - SKIN HYPERPIGMENTATION [None]
  - SKIN TEST POSITIVE [None]
  - STAPHYLOCOCCAL INFECTION [None]
  - WHITE BLOOD CELL COUNT INCREASED [None]
